FAERS Safety Report 6416344-8 (Version None)
Quarter: 2009Q4

REPORT INFORMATION
  Report Type: 
  Country: None (occurrence: None)
  Receive Date: 20091027
  Receipt Date: 20091020
  Transmission Date: 20100525
  Serious: No
  Sender: FDA-Public Use
  Company Number: US-B.I. PHARMACEUTICALS,INC./RIDGEFIELD-2009-BP-12236BP

PATIENT
  Sex: Male

DRUGS (8)
  1. FLOMAX [Suspect]
     Indication: BENIGN PROSTATIC HYPERPLASIA
     Dosage: 0.4 MG
     Route: 048
     Dates: start: 20090902
  2. AVODART [Suspect]
     Indication: BENIGN PROSTATIC HYPERPLASIA
     Dates: start: 20090902, end: 20090922
  3. TRAMADOL HCL [Concomitant]
     Indication: BACK PAIN
  4. ASPIRIN [Concomitant]
     Indication: VASCULAR GRAFT
  5. LIPITOR [Concomitant]
     Indication: BLOOD CHOLESTEROL INCREASED
  6. IBUPROFEN [Concomitant]
     Indication: BACK PAIN
  7. FOSAMAX [Concomitant]
     Indication: OSTEOPENIA
  8. DIPHENHYDRAMINE [Concomitant]
     Indication: INSOMNIA

REACTIONS (4)
  - LIBIDO DECREASED [None]
  - SEMEN VOLUME DECREASED [None]
  - SENSORY LOSS [None]
  - SEXUAL DYSFUNCTION [None]
